FAERS Safety Report 9838240 (Version 1)
Quarter: 2013Q4

REPORT INFORMATION
  Report Type: Spontaneous
  Country: US (occurrence: None)
  Receive Date: 20131205
  Receipt Date: 20131205
  Transmission Date: 20140711
  Serious: No
  Sender: FDA-Public Use
  Company Number: 163-POMAL-13100475

PATIENT
  Age: 63 Year
  Sex: Female

DRUGS (4)
  1. POMALYST (POMALIDOMIDE) (1 MILLIGRAM, CAPSULES) [Suspect]
     Indication: PLASMA CELL MYELOMA
     Dosage: 1 MG, 21 IN 21 D, PO
     Route: 048
     Dates: start: 20130917
  2. ACETYL L-CARNITINE (ACETYLCARNITINE) [Concomitant]
  3. CALCIUM (CALCIUM) [Concomitant]
  4. VITAMIN E (TOCOPHEROL) [Concomitant]

REACTIONS (3)
  - Burning sensation [None]
  - Back pain [None]
  - Muscle spasms [None]
